FAERS Safety Report 6403730-5 (Version None)
Quarter: 2009Q4

REPORT INFORMATION
  Report Type: 
  Country: None (occurrence: None)
  Receive Date: 20091016
  Receipt Date: 20091006
  Transmission Date: 20100525
  Serious: Yes (Hospitalization)
  Sender: FDA-Public Use
  Company Number: BR-ABBOTT-09P-020-0596805-00

PATIENT
  Sex: Female
  Weight: 60 kg

DRUGS (3)
  1. HUMIRA [Suspect]
     Indication: RHEUMATOID ARTHRITIS
     Route: 058
     Dates: start: 20080101, end: 20090401
  2. HUMIRA [Suspect]
     Dates: start: 20090501
  3. CALCORT [Concomitant]
     Dosage: 30MG-0.25 TABLET-7.5MG DAILY
     Route: 048

REACTIONS (4)
  - BONE EROSION [None]
  - OSTEOARTHRITIS [None]
  - PAIN [None]
  - VAGINAL LESION [None]
